FAERS Safety Report 6612716-7 (Version None)
Quarter: 2010Q1

REPORT INFORMATION
  Report Type: 
  Country: None (occurrence: None)
  Receive Date: 20100303
  Receipt Date: 20100223
  Transmission Date: 20100710
  Serious: No
  Sender: FDA-Public Use
  Company Number: US-BAYER-201014928NA

PATIENT
  Age: 47 Year
  Sex: Male
  Weight: 75 kg

DRUGS (1)
  1. ULTRAVIST 300 [Suspect]
     Indication: COMPUTERISED TOMOGRAM ABDOMEN
     Dosage: TOTAL DAILY DOSE: 100 ML
     Route: 042
     Dates: start: 20100221, end: 20100221

REACTIONS (2)
  - DYSPNOEA [None]
  - URTICARIA [None]
